FAERS Safety Report 9797478 (Version 2)
Quarter: 2014Q1

REPORT INFORMATION
  Report Type: Report from Study
  Country: CZ (occurrence: CZ)
  Receive Date: 20140106
  Receipt Date: 20140107
  Transmission Date: 20141002
  Serious: Yes (Death)
  Sender: FDA-Public Use
  Company Number: PHHY2013CZ152995

PATIENT
  Age: 66 Year
  Sex: 0

DRUGS (2)
  1. IMATINIB [Suspect]
     Indication: CHRONIC MYELOID LEUKAEMIA
     Dosage: 400 MG, DAILY
     Dates: start: 20021210, end: 20080310
  2. IMATINIB [Suspect]
     Dosage: 600 MG, DAILY
     Dates: start: 20080310, end: 20081110

REACTIONS (2)
  - Cerebrovascular accident [Fatal]
  - Drug resistance [Unknown]
